FAERS Safety Report 9019778 (Version 1)
Quarter: 2013Q1

REPORT INFORMATION
  Report Type: Spontaneous
  Country: US (occurrence: US)
  Receive Date: 20130118
  Receipt Date: 20130118
  Transmission Date: 20140127
  Serious: No
  Sender: FDA-Public Use
  Company Number: US-B.I. PHARMACEUTICALS,INC./RIDGEFIELD-2013-BI-01047BP

PATIENT
  Age: 64 None
  Sex: Male
  Weight: 86 kg

DRUGS (2)
  1. TRADJENTA [Suspect]
     Indication: DIABETES MELLITUS
     Route: 048
     Dates: start: 20121224, end: 20130110
  2. PRILOSEC OTC [Concomitant]
     Indication: GASTROOESOPHAGEAL REFLUX DISEASE
     Dosage: 20 MG
     Route: 048
     Dates: start: 2009

REACTIONS (1)
  - Hyperchlorhydria [Recovered/Resolved]
